FAERS Safety Report 12850150 (Version 1)
Quarter: 2016Q4

REPORT INFORMATION
  Report Type: Spontaneous
  Country: CO (occurrence: CO)
  Receive Date: 20161014
  Receipt Date: 20161014
  Transmission Date: 20170207
  Serious: Yes (Hospitalization)
  Sender: FDA-Public Use
  Company Number: CO-CELLTRION HEALTHCARE HUNGARY KFT-2016CO000375

PATIENT

DRUGS (1)
  1. REMSIMA [Suspect]
     Active Substance: INFLIXIMAB
     Indication: COLITIS ULCERATIVE
     Dosage: 300 MG, WEEK 0, 2 AND 6
     Route: 042
     Dates: start: 20151204, end: 20151204

REACTIONS (6)
  - Diarrhoea [Unknown]
  - Asthenia [Unknown]
  - Ileostomy [Unknown]
  - Anaemia [Unknown]
  - Colectomy total [Unknown]
  - Chills [Unknown]

NARRATIVE: CASE EVENT DATE: 20151204
